FAERS Safety Report 8325307-7 (Version None)
Quarter: 2012Q2

REPORT INFORMATION
  Report Type: 
  Country: None (occurrence: None)
  Receive Date: 20120427
  Receipt Date: 20120420
  Transmission Date: 20120825
  Serious: Yes (Hospitalization, Other)
  Sender: FDA-Public Use
  Company Number: 2010SP026331

PATIENT
  Age: 31 Year
  Sex: Female
  Weight: 82.5547 kg

DRUGS (2)
  1. NUVARING [Suspect]
     Indication: CONTRACEPTION
     Dates: start: 20070531, end: 20080901
  2. SEROQUEL [Suspect]
     Indication: ANXIETY
     Dates: start: 20080101, end: 20080101

REACTIONS (45)
  - DYSPEPSIA [None]
  - NEPHROLITHIASIS [None]
  - JOINT SWELLING [None]
  - CONTUSION [None]
  - NASAL SEPTUM DEVIATION [None]
  - NASAL TURBINATE HYPERTROPHY [None]
  - DEEP VEIN THROMBOSIS [None]
  - SLEEP DISORDER [None]
  - BIPOLAR DISORDER [None]
  - TREMOR [None]
  - EMBOLISM VENOUS [None]
  - PULMONARY EMBOLISM [None]
  - AFFECTIVE DISORDER [None]
  - NASAL DISORDER [None]
  - DIABETES MELLITUS [None]
  - ROAD TRAFFIC ACCIDENT [None]
  - CONDITION AGGRAVATED [None]
  - DRUG ABUSE [None]
  - VOMITING [None]
  - PREGNANCY WITH CONTRACEPTIVE DEVICE [None]
  - SEASONAL ALLERGY [None]
  - COUGH [None]
  - NAUSEA [None]
  - ABDOMINAL PAIN [None]
  - FEELING ABNORMAL [None]
  - STAPHYLOCOCCAL INFECTION [None]
  - MAJOR DEPRESSION [None]
  - FLANK PAIN [None]
  - CALCULUS URETERIC [None]
  - ARTHRALGIA [None]
  - LUNG CONSOLIDATION [None]
  - OEDEMA PERIPHERAL [None]
  - GLYCOSYLATED HAEMOGLOBIN INCREASED [None]
  - HYPERGLYCAEMIA [None]
  - PLEURITIC PAIN [None]
  - SINUS TACHYCARDIA [None]
  - SNORING [None]
  - HYDRONEPHROSIS [None]
  - FALL [None]
  - URINARY TRACT INFECTION [None]
  - PULMONARY INFARCTION [None]
  - POLLAKIURIA [None]
  - SMEAR CERVIX ABNORMAL [None]
  - CHRONIC SINUSITIS [None]
  - SINUS POLYP [None]
